FAERS Safety Report 8351370-3 (Version None)
Quarter: 2012Q2

REPORT INFORMATION
  Report Type: 
  Country: None (occurrence: None)
  Receive Date: 20120510
  Receipt Date: 20120502
  Transmission Date: 20120825
  Serious: Yes (Other)
  Sender: FDA-Public Use
  Company Number: US-ASTRAZENECA-2012SE28706

PATIENT
  Age: 63 Year
  Sex: Female

DRUGS (2)
  1. FASLODEX [Concomitant]
  2. ARIMIDEX [Suspect]
     Route: 048

REACTIONS (3)
  - HEPATIC LESION [None]
  - RECURRENT CANCER [None]
  - METASTASES TO LIVER [None]
